FAERS Safety Report 19214625 (Version 2)
Quarter: 2021Q3

REPORT INFORMATION
  Report Type: Other
  Country: US (occurrence: US)
  Receive Date: 20210505
  Receipt Date: 20210716
  Transmission Date: 20211014
  Serious: Yes (Other)
  Sender: FDA-Public Use
  Company Number: US-INTERCEPT-PM2021001211

PATIENT
  Age: 65 Year
  Sex: Female
  Weight: 59.05 kg

DRUGS (9)
  1. TYLENOL [Concomitant]
     Active Substance: ACETAMINOPHEN
     Route: 048
  2. AMLODIPINE [Concomitant]
     Active Substance: AMLODIPINE BESYLATE
     Dosage: 2.5 MILLIGRAM, QD
     Route: 048
  3. NYSTATIN. [Concomitant]
     Active Substance: NYSTATIN
     Dosage: 100000 INTERNATIONAL UNIT PER GRAM
  4. URSODIOL. [Concomitant]
     Active Substance: URSODIOL
     Dosage: 300 MILLIGRAM, TID
     Route: 048
  5. URSODIOL. [Concomitant]
     Active Substance: URSODIOL
     Dosage: 300 MILLIGRAM, BID
     Route: 048
  6. ZOLPIDEM [Concomitant]
     Active Substance: ZOLPIDEM TARTRATE
     Dosage: 10 MILLIGRAM
     Route: 048
  7. PANTOPRAZOLE [Concomitant]
     Active Substance: PANTOPRAZOLE
     Dosage: 40 MILLIGRAM, BID
     Route: 048
  8. TUMS [Concomitant]
     Active Substance: CALCIUM CARBONATE
     Route: 048
  9. OCALIVA [Suspect]
     Active Substance: OBETICHOLIC ACID
     Indication: PRIMARY BILIARY CHOLANGITIS
     Dosage: 5 MILLIGRAM, QD
     Route: 048
     Dates: start: 20200814

REACTIONS (28)
  - Chest pain [Unknown]
  - Weight decreased [Unknown]
  - Dyspnoea [Unknown]
  - Depression [Unknown]
  - Blood iron abnormal [Not Recovered/Not Resolved]
  - Regurgitation [Unknown]
  - Abdominal pain [Unknown]
  - Product dose omission issue [Recovered/Resolved]
  - Transferrin saturation decreased [Unknown]
  - Mean cell haemoglobin concentration abnormal [Unknown]
  - Fatigue [Unknown]
  - Flatulence [Unknown]
  - Pruritus [Unknown]
  - Hiatus hernia [Unknown]
  - Laboratory test abnormal [Unknown]
  - Transfusion [Recovered/Resolved]
  - Rheumatoid factor increased [Unknown]
  - Haematocrit abnormal [Unknown]
  - Erythema [Unknown]
  - Rectal haemorrhage [Unknown]
  - Gastritis [Unknown]
  - Dysphagia [Unknown]
  - Abdominal pain upper [Unknown]
  - Palpitations [Unknown]
  - Abdominal distension [Unknown]
  - Gastrooesophageal reflux disease [Unknown]
  - Proctalgia [Unknown]
  - Serum ferritin abnormal [Unknown]

NARRATIVE: CASE EVENT DATE: 2021
